FAERS Safety Report 6074896-4 (Version None)
Quarter: 2009Q1

REPORT INFORMATION
  Report Type: 
  Country: None (occurrence: None)
  Receive Date: 20090212
  Receipt Date: 20090205
  Transmission Date: 20090719
  Serious: Yes (Hospitalization)
  Sender: FDA-Public Use
  Company Number: FR-WYE-G03065109

PATIENT
  Sex: Male

DRUGS (8)
  1. EFFEXOR [Suspect]
     Route: 048
     Dates: start: 20081201, end: 20081230
  2. DIFFU K [Concomitant]
     Route: 048
     Dates: start: 20060101
  3. VITAMIN D3 [Concomitant]
     Route: 048
  4. EFFEXOR [Suspect]
     Route: 048
     Dates: start: 20070101, end: 20081201
  5. DIOSMIN [Concomitant]
     Route: 048
     Dates: end: 20081231
  6. FUROSEMIDE [Suspect]
     Route: 048
     Dates: start: 20060101, end: 20081230
  7. FUROSEMIDE [Suspect]
     Dosage: UNKNOWN; DOSE REDUCED
     Route: 048
     Dates: start: 20081231
  8. OROCAL [Concomitant]
     Route: 048

REACTIONS (6)
  - DISORIENTATION [None]
  - FALL [None]
  - FEAR OF FALLING [None]
  - MUSCULAR WEAKNESS [None]
  - ORTHOSTATIC HYPOTENSION [None]
  - TACHYCARDIA [None]
